FAERS Safety Report 9470361 (Version 13)
Quarter: 2016Q2

REPORT INFORMATION
  Report Type: Spontaneous
  Country: US (occurrence: US)
  Receive Date: 20130822
  Receipt Date: 20160525
  Transmission Date: 20160815
  Serious: Yes (Other)
  Sender: FDA-Public Use
  Company Number: US-SANOFI-AVENTIS-2013SA003716

PATIENT
  Age: 71 Year
  Sex: Female

DRUGS (27)
  1. MULTAQ [Suspect]
     Active Substance: DRONEDARONE
     Indication: ATRIAL FIBRILLATION
     Route: 048
     Dates: start: 201005
  2. MULTAQ [Suspect]
     Active Substance: DRONEDARONE
     Indication: ATRIAL FIBRILLATION
     Route: 048
     Dates: start: 201005
  3. MULTAQ [Suspect]
     Active Substance: DRONEDARONE
     Indication: ATRIAL FIBRILLATION
     Route: 048
     Dates: start: 201005
  4. MULTAQ [Suspect]
     Active Substance: DRONEDARONE
     Indication: PALPITATIONS
     Route: 048
     Dates: start: 201005
  5. CENTRUM SILVER [Concomitant]
     Active Substance: MINERALS\VITAMINS
     Dosage: CENTRUM SILVER FOR WOMEN OVER 50
  6. MULTAQ [Suspect]
     Active Substance: DRONEDARONE
     Indication: ATRIAL FIBRILLATION
     Route: 048
     Dates: start: 201005
  7. MULTAQ [Suspect]
     Active Substance: DRONEDARONE
     Indication: PALPITATIONS
     Route: 048
     Dates: start: 201005
  8. CALCIUM [Concomitant]
     Active Substance: CALCIUM
  9. FISH OIL [Concomitant]
     Active Substance: FISH OIL
  10. XANAX [Concomitant]
     Active Substance: ALPRAZOLAM
     Indication: ANXIETY
  11. MULTAQ [Suspect]
     Active Substance: DRONEDARONE
     Indication: PALPITATIONS
     Route: 048
     Dates: start: 201005
  12. MULTAQ [Suspect]
     Active Substance: DRONEDARONE
     Indication: ATRIAL FIBRILLATION
     Route: 048
     Dates: start: 201005
  13. PRILOSEC [Suspect]
     Active Substance: OMEPRAZOLE MAGNESIUM
     Route: 065
  14. MAGNESIUM CITRATE. [Concomitant]
     Active Substance: MAGNESIUM CITRATE
     Dates: start: 20140529
  15. ALPRAZOLAM. [Concomitant]
     Active Substance: ALPRAZOLAM
     Indication: ANXIETY
  16. MULTAQ [Suspect]
     Active Substance: DRONEDARONE
     Indication: PALPITATIONS
     Route: 048
     Dates: start: 201005
  17. ASPIRIN. [Concomitant]
     Active Substance: ASPIRIN
  18. VITAMIN D [Concomitant]
     Active Substance: CHOLECALCIFEROL
     Indication: OSTEOPOROSIS
     Dosage: DOSE:1000 UNIT(S)
  19. CRESTOR [Concomitant]
     Active Substance: ROSUVASTATIN CALCIUM
     Indication: BLOOD CHOLESTEROL
  20. MIRALAX [Concomitant]
     Active Substance: POLYETHYLENE GLYCOL 3350
     Indication: GASTROINTESTINAL MOTILITY DISORDER
     Dates: start: 20140526, end: 20140529
  21. XANAX [Concomitant]
     Active Substance: ALPRAZOLAM
  22. MULTAQ [Suspect]
     Active Substance: DRONEDARONE
     Indication: PALPITATIONS
     Route: 048
     Dates: start: 201005
  23. MULTAQ [Suspect]
     Active Substance: DRONEDARONE
     Indication: PALPITATIONS
     Route: 048
     Dates: start: 201005
  24. MULTAQ [Suspect]
     Active Substance: DRONEDARONE
     Indication: ATRIAL FIBRILLATION
     Route: 048
     Dates: start: 201005
  25. CRESTOR [Concomitant]
     Active Substance: ROSUVASTATIN CALCIUM
  26. SINTROM [Concomitant]
     Active Substance: ACENOCOUMAROL
  27. CALTRATE [Concomitant]
     Active Substance: CALCIUM CARBONATE

REACTIONS (28)
  - Gastrooesophageal reflux disease [Unknown]
  - Cough [Recovering/Resolving]
  - Chest pain [Recovered/Resolved]
  - Increased upper airway secretion [Unknown]
  - Back pain [Unknown]
  - Upper respiratory tract infection [Unknown]
  - Tooth disorder [Not Recovered/Not Resolved]
  - Malaise [Unknown]
  - Electrocardiogram QT prolonged [Unknown]
  - Heart rate increased [Unknown]
  - Urinary tract infection [Unknown]
  - Dry mouth [Unknown]
  - Wheezing [Not Recovered/Not Resolved]
  - Heart rate irregular [Unknown]
  - Nervousness [Unknown]
  - Blood glucose decreased [Unknown]
  - Bradycardia [Unknown]
  - Tremor [Unknown]
  - Feeling abnormal [Unknown]
  - Feeling hot [Recovered/Resolved]
  - Blood magnesium decreased [Unknown]
  - Gastric disorder [Not Recovered/Not Resolved]
  - Sputum increased [Not Recovered/Not Resolved]
  - Lower respiratory tract infection [Not Recovered/Not Resolved]
  - Anxiety [Unknown]
  - Palpitations [Not Recovered/Not Resolved]
  - Dry eye [Unknown]
  - Atrial fibrillation [Not Recovered/Not Resolved]

NARRATIVE: CASE EVENT DATE: 20130313
